FAERS Safety Report 7660337-X (Version None)
Quarter: 2011Q3

REPORT INFORMATION
  Report Type: 
  Country: None (occurrence: None)
  Receive Date: 20110805
  Receipt Date: 20110802
  Transmission Date: 20111222
  Serious: Yes (Death, Hospitalization)
  Sender: FDA-Public Use
  Company Number: FR-PFIZER INC-2011175813

PATIENT
  Age: 52 Year
  Sex: Female

DRUGS (3)
  1. GEMTUZUMAB OZOGAMICIN [Suspect]
     Indication: ACUTE MYELOID LEUKAEMIA
     Dosage: UNK
     Route: 042
     Dates: start: 20081122, end: 20081122
  2. CYTARABINE [Suspect]
     Indication: ACUTE MYELOID LEUKAEMIA
     Dosage: UNK
     Route: 042
     Dates: start: 20081122, end: 20081122
  3. NOVANTRONE [Suspect]
     Indication: ACUTE MYELOID LEUKAEMIA
     Dosage: UNK
     Route: 042
     Dates: start: 20081119, end: 20081120

REACTIONS (7)
  - RESPIRATORY DISTRESS [None]
  - MULTI-ORGAN FAILURE [None]
  - HYDROCEPHALUS [None]
  - SEPTIC SHOCK [None]
  - BONE MARROW FAILURE [None]
  - CHOLECYSTITIS [None]
  - MENINGITIS HERPES [None]
